FAERS Safety Report 15747014 (Version 5)
Quarter: 2023Q2

REPORT INFORMATION
  Report Type: Spontaneous
  Country: DE (occurrence: DE)
  Receive Date: 20181220
  Receipt Date: 20230605
  Transmission Date: 20230722
  Serious: Yes (Death, Disabling, Congenital Anomaly, Other)
  Sender: FDA-Public Use
  Company Number: DE-GLAXOSMITHKLINE-DE2018GSK106547

PATIENT
  Weight: 0.056 kg

DRUGS (23)
  1. PANTOPRAZOLE [Suspect]
     Active Substance: PANTOPRAZOLE
     Indication: Product used for unknown indication
     Dosage: 40 MILLIGRAM, QD, 40 [MG/D]; 0-13.6 GESTATIONAL W
     Route: 064
     Dates: start: 20111214, end: 20120320
  2. TORSEMIDE [Suspect]
     Active Substance: TORSEMIDE
     Indication: Product used for unknown indication
     Dosage: 100 MILLIGRAM, QD, FROM GESTATIONAL WEEK 0-14
     Route: 064
     Dates: start: 20111214, end: 20120320
  3. TACROLIMUS [Suspect]
     Active Substance: TACROLIMUS
     Indication: Product used for unknown indication
     Dosage: FROM GESTATIONAL WEEK 0-14
     Route: 064
     Dates: start: 20111214, end: 20120320
  4. EZETIMIBE [Suspect]
     Active Substance: EZETIMIBE
     Indication: Product used for unknown indication
     Dosage: FROM GESTATIONAL WEEK 0-14
     Route: 048
  5. SIMVASTATIN [Suspect]
     Active Substance: SIMVASTATIN
     Indication: Product used for unknown indication
     Dosage: FROM GESTATIONAL WEEK 0-14
     Route: 064
     Dates: start: 20111214, end: 20120320
  6. ALBUTEROL [Suspect]
     Active Substance: ALBUTEROL
     Indication: Product used for unknown indication
     Dosage: , QD, FROM GESTATIONAL WEEK 0-14
     Route: 064
  7. RAMIPRIL [Suspect]
     Active Substance: RAMIPRIL
     Indication: Product used for unknown indication
     Dosage: 20 MG, QD(FROM GESTATIONAL WEEK 0-113+6)
     Route: 064
     Dates: start: 20111214, end: 20120320
  8. HYDROXYCHLOROQUINE [Suspect]
     Active Substance: HYDROXYCHLOROQUINE
     Indication: Product used for unknown indication
     Dosage: FROM GESTATIONAL WEEK 0-14
     Route: 064
     Dates: start: 20111214, end: 20120320
  9. PREDNISOLONE [Suspect]
     Active Substance: PREDNISOLONE
     Indication: Product used for unknown indication
     Dosage: FROM GESTATIONAL WEEK 0-14
     Route: 064
     Dates: start: 20111214, end: 20120320
  10. XARELTO [Suspect]
     Active Substance: RIVAROXABAN
     Indication: Product used for unknown indication
     Dosage: FROM GESTATIONAL WEEK 0-5
     Route: 064
  11. ASPIRIN [Suspect]
     Active Substance: ASPIRIN
     Indication: Product used for unknown indication
     Dosage: FROM GESTATIONAL WEEK 0-14
     Route: 064
     Dates: start: 20111214, end: 20120320
  12. NICOTINE [Suspect]
     Active Substance: NICOTINE
     Indication: Product used for unknown indication
     Dosage: FROM GESTATIONAL WEEK 0-14
     Route: 064
  13. METAMIZOLE [Suspect]
     Active Substance: METAMIZOLE
     Indication: Product used for unknown indication
     Dosage: FROM GESTATIONAL WEEK 0-14
     Route: 064
  14. ALISKIREN [Suspect]
     Active Substance: ALISKIREN
     Indication: Product used for unknown indication
     Dosage: 300 MILLIGRAM, QD
     Route: 064
     Dates: start: 20111214, end: 20120117
  15. ENOXAPARIN SODIUM [Suspect]
     Active Substance: ENOXAPARIN SODIUM
     Indication: Product used for unknown indication
     Dosage: FROM GESTATIONAL WEEK 0-14
     Route: 064
  16. DALTEPARIN SODIUM [Suspect]
     Active Substance: DALTEPARIN SODIUM
     Indication: Product used for unknown indication
     Dosage: UNK
     Route: 065
  17. RITUXIMAB [Suspect]
     Active Substance: RITUXIMAB
     Indication: Systemic lupus erythematosus
     Dosage: DECEMBER 2011: PRE OR PERICONCEPTIONAL
     Route: 064
     Dates: end: 201112
  18. UNSPECIFIED INGREDIENT [Suspect]
     Active Substance: UNSPECIFIED INGREDIENT
     Indication: Product used for unknown indication
     Dosage: UNK
     Route: 064
  19. ENOXAPARIN SODIUM [Suspect]
     Active Substance: ENOXAPARIN SODIUM
     Indication: Pulmonary embolism
     Dosage: 200 MILLIGRAM, QD
     Route: 064
     Dates: start: 20111214, end: 20120320
  20. CYTOTEC [Concomitant]
     Active Substance: MISOPROSTOL
     Indication: Abortion induced
     Dosage: 13.6 GESTATIONAL WEEK
     Route: 048
     Dates: start: 20120320, end: 20120320
  21. CYCLOPHOSPHAMIDE [Concomitant]
     Active Substance: CYCLOPHOSPHAMIDE
     Indication: Systemic lupus erythematosus
     Dosage: 3000 [MG CUMULATIVE]; PRECONCEPTIONAL
     Route: 064
  22. MIFEPRISTONE [Concomitant]
     Active Substance: MIFEPRISTONE
     Indication: Abortion induced
     Dosage: 13.6 GESTATIONAL WEEK
     Route: 064
     Dates: start: 20120320, end: 20120320
  23. METAMIZOLE [Suspect]
     Active Substance: METAMIZOLE
     Indication: Pulmonary embolism
     Route: 064

REACTIONS (10)
  - Death [Fatal]
  - Abortion induced [Fatal]
  - Ventricular septal defect [Fatal]
  - Truncus arteriosus persistent [Fatal]
  - Congenital cardiovascular anomaly [Fatal]
  - Heart disease congenital [Fatal]
  - Cardiac septal defect [Fatal]
  - Foetal exposure during pregnancy [Fatal]
  - Premature baby [Unknown]
  - Low birth weight baby [Unknown]
